FAERS Safety Report 14626905 (Version 6)
Quarter: 2018Q3

REPORT INFORMATION
  Report Type: Spontaneous
  Country: US (occurrence: US)
  Receive Date: 20180312
  Receipt Date: 20180924
  Transmission Date: 20181010
  Serious: Yes (Other)
  Sender: FDA-Public Use
  Company Number: US-PFIZER INC-2018095585

PATIENT
  Age: 68 Year
  Sex: Female

DRUGS (1)
  1. ZOLEDRONIC ACID [Suspect]
     Active Substance: ZOLEDRONIC ACID
     Indication: OSTEOPOROSIS
     Dosage: 4 MG, SINGLE  (INFUSION)
     Route: 042

REACTIONS (5)
  - Idiopathic orbital inflammation [Recovered/Resolved]
  - Scleritis [Recovered/Resolved]
  - Corneal endotheliitis [Recovered/Resolved]
  - Iridocyclitis [Recovered/Resolved]
  - Hyphaema [Recovered/Resolved]
